FAERS Safety Report 9739096 (Version 1)
Quarter: 2013Q4

REPORT INFORMATION
  Report Type: Spontaneous
  Country: US (occurrence: US)
  Receive Date: 20131209
  Receipt Date: 20131209
  Transmission Date: 20140711
  Serious: No
  Sender: FDA-Public Use
  Company Number: US-009507513-1312USA003819

PATIENT
  Sex: Female

DRUGS (2)
  1. DR. SCHOLL^S INGROWN TOENAIL PAIN RELIEVER [Suspect]
     Indication: PAIN
     Dosage: UNK, UNKNOWN
     Route: 061
  2. DR. SCHOLL^S INGROWN TOENAIL PAIN RELIEVER [Suspect]
     Indication: INGROWING NAIL

REACTIONS (1)
  - Drug ineffective [Unknown]
